FAERS Safety Report 8136062-8 (Version None)
Quarter: 2012Q1

REPORT INFORMATION
  Report Type: 
  Country: None (occurrence: None)
  Receive Date: 20120214
  Receipt Date: 20120130
  Transmission Date: 20120608
  Serious: Yes (Other)
  Sender: FDA-Public Use
  Company Number: TW-WATSON-2012-01910

PATIENT
  Age: 61 Year
  Sex: Female

DRUGS (2)
  1. RAMIPRIL [Suspect]
     Indication: HYPERTENSION
     Dosage: UNK
     Route: 065
  2. ALTEPLASE [Suspect]
     Indication: ISCHAEMIC STROKE

REACTIONS (2)
  - ANAPHYLACTOID SHOCK [None]
  - DRUG INTERACTION [None]
